FAERS Safety Report 26134934 (Version 1)
Quarter: 2025Q4

REPORT INFORMATION
  Report Type: Spontaneous
  Country: EU (occurrence: EU)
  Receive Date: 20251209
  Receipt Date: 20251209
  Transmission Date: 20260118
  Serious: Yes (Other)
  Sender: FRESENIUS KABI
  Company Number: None

PATIENT
  Age: 78 Year
  Sex: Female
  Weight: 51 kg

DRUGS (4)
  1. ADALIMUMAB [Suspect]
     Active Substance: ADALIMUMAB
     Indication: Crohn^s disease
     Dosage: (2 X 80 MG AS AN ATTACK TREATMENT ON 04/07/2025) (160/80/40), ONE INJECTION EVERY 15 DAYS, UNTIL SEP
     Route: 058
     Dates: start: 20240704, end: 20250123
  2. INFLIXIMAB [Suspect]
     Active Substance: INFLIXIMAB
     Indication: Crohn^s disease
     Dosage: 300 MG/1 TIME EVERY 8 WEEKS
     Route: 042
     Dates: start: 20180215, end: 20220201
  3. INFLIXIMAB [Suspect]
     Active Substance: INFLIXIMAB
     Dosage: 300 MG/1 TIME EVERY 8 WEEKS
     Route: 042
     Dates: start: 20221004, end: 20240123
  4. INFLIXIMAB [Suspect]
     Active Substance: INFLIXIMAB
     Indication: Crohn^s disease
     Dosage: 120 MG 1 TIME EVERY 15 DAYS
     Route: 058
     Dates: start: 20220329

REACTIONS (3)
  - Restless legs syndrome [Recovered/Resolved]
  - Ocular rosacea [Recovering/Resolving]
  - Rosacea [Recovering/Resolving]
